FAERS Safety Report 26118962 (Version 1)
Quarter: 2025Q4

REPORT INFORMATION
  Report Type: Spontaneous
  Country: CA (occurrence: CA)
  Receive Date: 20251204
  Receipt Date: 20251204
  Transmission Date: 20260118
  Serious: Yes (Other)
  Sender: AUROBINDO
  Company Number: CA-AUROBINDO-AUR-APL-2025-060704

PATIENT
  Age: 41 Year
  Sex: Male

DRUGS (4)
  1. DEFERASIROX [Suspect]
     Active Substance: DEFERASIROX
     Indication: Blood iron increased
     Dosage: 810 MILLIGRAM, ONCE A DAY
  2. DEFERASIROX [Suspect]
     Active Substance: DEFERASIROX
     Indication: Anaemia
  3. DEFERASIROX [Suspect]
     Active Substance: DEFERASIROX
     Indication: Blood iron increased
     Dosage: 720 MILLIGRAM, ONCE A DAY
  4. DEFERASIROX [Suspect]
     Active Substance: DEFERASIROX
     Indication: Anaemia

REACTIONS (1)
  - Gallbladder disorder [Unknown]
